FAERS Safety Report 7430178-7 (Version None)
Quarter: 2011Q2

REPORT INFORMATION
  Report Type: 
  Country: None (occurrence: None)
  Receive Date: 20110421
  Receipt Date: 20100715
  Transmission Date: 20111010
  Serious: No
  Sender: FDA-Public Use
  Company Number: US-ASTRAZENECA-2010SE33016

PATIENT
  Sex: Female
  Weight: 70.8 kg

DRUGS (2)
  1. TOPROL-XL [Suspect]
     Route: 048
     Dates: start: 20100715
  2. IMDUR [Concomitant]

REACTIONS (1)
  - BLOOD GLUCOSE INCREASED [None]
